FAERS Safety Report 5359414-8 (Version None)
Quarter: 2007Q2

REPORT INFORMATION
  Report Type: 
  Country: None (occurrence: None)
  Receive Date: 20070615
  Receipt Date: 20070605
  Transmission Date: 20071010
  Serious: Yes (Hospitalization)
  Sender: FDA-Public Use
  Company Number: FR-ABBOTT-02P-056-0114623-00

PATIENT
  Sex: Female

DRUGS (8)
  1. NORVIR [Suspect]
     Indication: DRUG EXPOSURE DURING PREGNANCY
  2. ZIDOVUDINE [Suspect]
     Indication: DRUG EXPOSURE DURING PREGNANCY
  3. LAMIVUDINE [Suspect]
     Indication: DRUG EXPOSURE DURING PREGNANCY
  4. SAQUINAVIR [Suspect]
     Indication: DRUG EXPOSURE DURING PREGNANCY
  5. STAVUDINE [Suspect]
     Indication: DRUG EXPOSURE DURING PREGNANCY
  6. DIDANOSINE [Suspect]
     Indication: DRUG EXPOSURE DURING PREGNANCY
  7. ZIDOVUDINE [Suspect]
     Dates: start: 19980804
  8. LAMIVUDINE [Suspect]
     Dates: start: 19980408

REACTIONS (1)
  - NUCLEAR MAGNETIC RESONANCE IMAGING ABNORMAL [None]
